FAERS Safety Report 4608259-2 (Version None)
Quarter: 2005Q1

REPORT INFORMATION
  Report Type: 
  Country: None (occurrence: None)
  Receive Date: 20050311
  Receipt Date: 20050307
  Transmission Date: 20050727
  Serious: Yes (Life-Threatening)
  Sender: FDA-Public Use
  Company Number: 2005AP01514

PATIENT
  Age: 72 Year
  Sex: Male

DRUGS (1)
  1. DIPRIVAN [Suspect]
     Dates: start: 20050307, end: 20050307

REACTIONS (1)
  - ANAPHYLACTOID REACTION [None]
